FAERS Safety Report 7510414-9 (Version None)
Quarter: 2011Q2

REPORT INFORMATION
  Report Type: 
  Country: None (occurrence: None)
  Receive Date: 20110527
  Receipt Date: 20110520
  Transmission Date: 20111010
  Serious: Yes (Hospitalization)
  Sender: FDA-Public Use
  Company Number: US-MERCK-1010USA01166

PATIENT
  Age: 56 Year
  Sex: Female
  Weight: 91 kg

DRUGS (6)
  1. FOSAMAX [Suspect]
     Indication: OSTEOPENIA
     Route: 048
     Dates: start: 20031001, end: 20091001
  2. FOSAMAX [Suspect]
     Route: 048
     Dates: start: 20011129
  3. FOSAMAX [Suspect]
     Route: 048
     Dates: start: 20080415, end: 20090801
  4. FOSAMAX [Suspect]
     Indication: OSTEOPOROSIS
     Route: 048
     Dates: start: 20031001, end: 20091001
  5. FOSAMAX [Suspect]
     Route: 048
     Dates: start: 20011129
  6. CORTICOSTEROIDS (UNSPECIFIED) [Concomitant]
     Route: 065
     Dates: start: 19760101, end: 20070101

REACTIONS (24)
  - TEMPOROMANDIBULAR JOINT SYNDROME [None]
  - GASTROOESOPHAGEAL REFLUX DISEASE [None]
  - FEMUR FRACTURE [None]
  - GALLBLADDER DISORDER [None]
  - NON-CARDIAC CHEST PAIN [None]
  - BONE DENSITY DECREASED [None]
  - SKIN LESION [None]
  - BACK PAIN [None]
  - HEADACHE [None]
  - HERPES SIMPLEX [None]
  - TENDONITIS [None]
  - PERIODONTAL DISEASE [None]
  - CHEST PAIN [None]
  - VAGINAL DISCHARGE [None]
  - ARTHROPATHY [None]
  - BLOOD GLUCOSE ABNORMAL [None]
  - SEBORRHOEIC KERATOSIS [None]
  - REACTIVE AIRWAYS DYSFUNCTION SYNDROME [None]
  - BRONCHITIS [None]
  - GASTROENTERITIS [None]
  - HYPERLIPIDAEMIA [None]
  - BLOOD PRESSURE INCREASED [None]
  - HYPERTENSION [None]
  - NODULE [None]
